FAERS Safety Report 5238333-1 (Version None)
Quarter: 2007Q1

REPORT INFORMATION
  Report Type: 
  Country: None (occurrence: None)
  Receive Date: 20070212
  Receipt Date: 20070212
  Transmission Date: 20070707
  Serious: No
  Sender: FDA-Public Use
  Company Number: None

PATIENT
  Age: 60 Year
  Sex: Male
  Weight: 90.7194 kg

DRUGS (1)
  1. ZICAM [Suspect]
     Indication: NASOPHARYNGITIS
     Dosage: SWAB EACH NOSTRIL EVERY 4 HOURS
     Dates: start: 20070204, end: 20070205

REACTIONS (2)
  - AGEUSIA [None]
  - ANOSMIA [None]
